FAERS Safety Report 7620734-5 (Version None)
Quarter: 2011Q3

REPORT INFORMATION
  Report Type: 
  Country: None (occurrence: None)
  Receive Date: 20110719
  Receipt Date: 20110711
  Transmission Date: 20111222
  Serious: Yes (Death)
  Sender: FDA-Public Use
  Company Number: JP-GLAXOSMITHKLINE-B0732952A

PATIENT
  Sex: Male
  Weight: 83 kg

DRUGS (18)
  1. TACROLIMUS [Concomitant]
     Indication: IMMUNOSUPPRESSION
     Dosage: 3MG PER DAY
     Route: 065
     Dates: start: 20100726
  2. DIOVAN [Concomitant]
     Dosage: 80MG PER DAY
     Route: 048
     Dates: start: 20100721, end: 20100908
  3. KYTRIL [Concomitant]
     Dosage: 3MG PER DAY
     Route: 042
     Dates: start: 20100721, end: 20100724
  4. POLYMYXIN B SULFATE [Concomitant]
     Dosage: 12IUAX PER DAY
     Route: 048
     Dates: start: 20100721, end: 20100804
  5. PRIMPERAN TAB [Concomitant]
     Dosage: 10MG PER DAY
     Dates: start: 20100721, end: 20100907
  6. ALKERAN [Suspect]
     Indication: CORD BLOOD TRANSPLANT THERAPY
     Dosage: 50MGM2 PER DAY
     Route: 042
     Dates: start: 20100721, end: 20100721
  7. METHOTREXATE [Concomitant]
     Dosage: 14MG PER DAY
     Route: 065
     Dates: start: 20100729, end: 20100729
  8. FUNGUARD [Concomitant]
     Dosage: 1IUAX PER DAY
     Route: 042
     Dates: start: 20100721, end: 20100725
  9. HEPARIN SODIUM [Concomitant]
     Dosage: 5IU3 PER DAY
     Dates: start: 20100721, end: 20101002
  10. PROMAC [Concomitant]
     Dosage: 150MG PER DAY
     Route: 048
     Dates: start: 20100721, end: 20100818
  11. ACETAMINOPHEN [Concomitant]
     Route: 048
     Dates: start: 20100721
  12. VICCLOX [Concomitant]
     Dosage: 600MG PER DAY
     Route: 048
     Dates: start: 20100721, end: 20100818
  13. URSO 250 [Concomitant]
     Dosage: 300MG PER DAY
     Route: 048
     Dates: start: 20100721, end: 20100927
  14. METHOTREXATE [Concomitant]
     Indication: IMMUNOSUPPRESSION
     Dosage: 20MG PER DAY
     Route: 065
     Dates: start: 20100724, end: 20100724
  15. BIOFERMIN R [Concomitant]
     Dosage: 3IUAX PER DAY
     Route: 048
     Dates: start: 20100721, end: 20100804
  16. LANSOPRAZOLE [Concomitant]
     Dosage: 15MG PER DAY
     Route: 048
     Dates: start: 20100721, end: 20100804
  17. FLUDARA [Concomitant]
     Indication: CORD BLOOD TRANSPLANT THERAPY
     Dosage: 50MG PER DAY
     Route: 042
     Dates: start: 20100716, end: 20100720
  18. METHOTREXATE [Concomitant]
     Dosage: 14MG PER DAY
     Route: 065
     Dates: start: 20100726, end: 20100726

REACTIONS (1)
  - PNEUMONIA BACTERIAL [None]
